FAERS Safety Report 7463137-9 (Version None)
Quarter: 2011Q2

REPORT INFORMATION
  Report Type: 
  Country: None (occurrence: None)
  Receive Date: 20110506
  Receipt Date: 20110427
  Transmission Date: 20111010
  Serious: Yes (Other)
  Sender: FDA-Public Use
  Company Number: US-ROCHE-747782

PATIENT
  Sex: Female
  Weight: 46.7 kg

DRUGS (3)
  1. ESTROGENIC SUBSTANCE [Concomitant]
  2. ZOLOFT [Concomitant]
  3. ACCUTANE [Suspect]
     Indication: ACNE
     Route: 065
     Dates: start: 19990101, end: 19991201

REACTIONS (5)
  - INFLAMMATORY BOWEL DISEASE [None]
  - SUICIDAL IDEATION [None]
  - DEPRESSION [None]
  - GASTROINTESTINAL INJURY [None]
  - CROHN'S DISEASE [None]
